FAERS Safety Report 9672355 (Version 1)
Quarter: 2013Q4

REPORT INFORMATION
  Report Type: Spontaneous
  Country: US (occurrence: US)
  Receive Date: 20131106
  Receipt Date: 20131106
  Transmission Date: 20140711
  Serious: Yes (Other)
  Sender: FDA-Public Use
  Company Number: US-PFIZER INC-2013317183

PATIENT
  Age: 50 Year
  Sex: Male
  Weight: 138 kg

DRUGS (3)
  1. LYRICA [Suspect]
     Indication: DIABETIC NEUROPATHY
     Dosage: 300 MG, 2X/DAY
  2. HUMALOG [Concomitant]
     Indication: DIABETES MELLITUS
     Dosage: 20 IU, 3X/DAY
  3. GLIPIZIDE [Concomitant]
     Indication: DIABETES MELLITUS
     Dosage: 5 MG, 2X/DAY

REACTIONS (3)
  - Bipolar disorder [Unknown]
  - Suicide attempt [Unknown]
  - Mental disorder [Unknown]
